FAERS Safety Report 8851124 (Version 3)
Quarter: 2012Q4

REPORT INFORMATION
  Report Type: 
  Country: JP (occurrence: JP)
  Receive Date: 20121020
  Receipt Date: 20121120
  Transmission Date: 20130627
  Serious: Yes (Life-Threatening)
  Sender: FDA-Public Use
  Company Number: JP-AMGEN-JPNSP2012066477

PATIENT
  Age: 86 Year
  Sex: Female
  Weight: 40 kg

DRUGS (9)
  1. ARANESP [Suspect]
     Indication: NEPHROGENIC ANAEMIA
     Dosage: 30 mug, q2wk
     Route: 058
     Dates: start: 20120904, end: 20120918
  2. RIKKUNSHITO [Concomitant]
     Dosage: 1 DF, bid
     Route: 048
  3. TAKEPRON [Concomitant]
     Dosage: 15 mg, qd
     Route: 048
  4. FERROMIA [Concomitant]
     Dosage: 100 mg, bid
     Route: 048
  5. ZESULAN [Concomitant]
     Dosage: 3 mg, qd
     Route: 048
  6. BLOPRESS [Concomitant]
     Dosage: 8 mg, qd
     Route: 048
  7. FLUITRAN [Concomitant]
     Dosage: 1 mg, qd
     Route: 048
  8. UNKNOWNDRUG [Concomitant]
     Route: 048
  9. LANSOPRAZOLE-OD [Concomitant]
     Dosage: 1 DF, qd
     Route: 048

REACTIONS (1)
  - Platelet count decreased [Recovered/Resolved]
